FAERS Safety Report 9568081 (Version 1)
Quarter: 2013Q3

REPORT INFORMATION
  Report Type: Spontaneous
  Country: US (occurrence: US)
  Receive Date: 20130930
  Receipt Date: 20130930
  Transmission Date: 20140515
  Serious: No
  Sender: FDA-Public Use
  Company Number: US-AMGEN-USASP2013055236

PATIENT
  Age: 53 Year
  Sex: Male
  Weight: 102.95 kg

DRUGS (6)
  1. ENBREL [Suspect]
     Indication: PRODUCT USED FOR UNKNOWN INDICATION
     Dosage: 50 MG, QWK
     Route: 058
  2. METOPROLOL [Concomitant]
     Dosage: 50 MG, UNK
  3. SIMVASTATIN [Concomitant]
     Dosage: 40 MG, UNK
  4. HYDROCHLOROTH [Concomitant]
     Dosage: 25 MG, UNK
  5. ALEVE [Concomitant]
     Dosage: 220 MG, UNK
  6. METHOTREXATE [Concomitant]
     Dosage: 2.5 MG, UNK

REACTIONS (6)
  - Laceration [Unknown]
  - Impaired healing [Unknown]
  - Erythema [Unknown]
  - Local swelling [Unknown]
  - Pain in extremity [Unknown]
  - Dizziness [Unknown]
